FAERS Safety Report 5852000-2 (Version None)
Quarter: 2008Q3

REPORT INFORMATION
  Report Type: 
  Country: None (occurrence: None)
  Receive Date: 20080820
  Receipt Date: 20080808
  Transmission Date: 20090109
  Serious: Yes (Hospitalization)
  Sender: FDA-Public Use
  Company Number: FR-PFIZER INC-2008066748

PATIENT
  Sex: Female

DRUGS (5)
  1. SOLU-MEDROL [Suspect]
     Route: 042
  2. PACLITAXEL [Suspect]
  3. FENTANYL-25 [Suspect]
     Dosage: DAILY DOSE:.3333-TEXT:0.3333 DF
     Route: 062
  4. ZOLPIDEM TARTRATE [Concomitant]
  5. AMPHOTERICIN B [Concomitant]
     Dates: start: 20080707, end: 20080713

REACTIONS (1)
  - DERMATOMYOSITIS [None]
